FAERS Safety Report 23483652 (Version 1)
Quarter: 2024Q1

REPORT INFORMATION
  Report Type: Spontaneous
  Country: NL (occurrence: NL)
  Receive Date: 20240205
  Receipt Date: 20240205
  Transmission Date: 20240410
  Serious: Yes (Other)
  Sender: FDA-Public Use
  Company Number: NL-VIIV HEALTHCARE LIMITED-NL2023EME139447

PATIENT
  Age: 49 Year
  Sex: Male

DRUGS (8)
  1. ABACAVIR SULFATE\LAMIVUDINE\ZIDOVUDINE [Suspect]
     Active Substance: ABACAVIR SULFATE\LAMIVUDINE\ZIDOVUDINE
     Indication: HIV infection CDC category B
     Dosage: UNK
     Route: 065
     Dates: start: 2015
  2. VOCABRIA [Suspect]
     Active Substance: CABOTEGRAVIR SODIUM
     Indication: HIV infection CDC category B
     Dosage: 600 MILLIGRAM
     Route: 042
     Dates: start: 202209
  3. DOLUTEGRAVIR [Suspect]
     Active Substance: DOLUTEGRAVIR
     Indication: HIV infection CDC category B
     Dosage: UNK
     Route: 065
     Dates: start: 2015
  4. RILPIVIRINE [Suspect]
     Active Substance: RILPIVIRINE
     Indication: HIV infection CDC category B
     Dosage: 900 MILLIGRAM
     Route: 042
     Dates: start: 202209
  5. DOLUTEGRAVIR SODIUM\LAMIVUDINE [Suspect]
     Active Substance: DOLUTEGRAVIR SODIUM\LAMIVUDINE
     Indication: HIV infection CDC category B
     Dosage: UNK
     Route: 048
     Dates: start: 2022
  6. VOCABRIA [Concomitant]
     Active Substance: CABOTEGRAVIR SODIUM
     Indication: HIV infection CDC category B
     Dosage: UNK
     Route: 048
     Dates: start: 202208
  7. ABACAVIR SULFATE\DOLUTEGRAVIR SODIUM\LAMIVUDINE [Concomitant]
     Active Substance: ABACAVIR SULFATE\DOLUTEGRAVIR SODIUM\LAMIVUDINE
     Indication: Product used for unknown indication
     Dosage: UNK
     Route: 048
  8. EDURANT [Concomitant]
     Active Substance: RILPIVIRINE HYDROCHLORIDE
     Indication: HIV infection CDC category B
     Dosage: UNK
     Route: 048
     Dates: start: 202208

REACTIONS (4)
  - Pathogen resistance [Unknown]
  - Virologic failure [Recovered/Resolved]
  - Drug level decreased [Unknown]
  - Viral mutation identified [Unknown]

NARRATIVE: CASE EVENT DATE: 20230501
